FAERS Safety Report 6708510-9 (Version None)
Quarter: 2010Q2

REPORT INFORMATION
  Report Type: 
  Country: None (occurrence: None)
  Receive Date: 20100503
  Receipt Date: 20090422
  Transmission Date: 20101027
  Serious: No
  Sender: FDA-Public Use
  Company Number: US-ASTRAZENECA-2009UW10164

PATIENT
  Sex: Female

DRUGS (6)
  1. NEXIUM [Suspect]
     Indication: GASTROOESOPHAGEAL REFLUX DISEASE
     Route: 048
     Dates: start: 20090412
  2. TUMS [Concomitant]
  3. EFFEXOR [Concomitant]
  4. VITAMINS [Concomitant]
  5. RESTORIL [Concomitant]
  6. STATIN [Concomitant]

REACTIONS (6)
  - BURNING SENSATION [None]
  - DRUG INEFFECTIVE [None]
  - DYSGEUSIA [None]
  - ERUCTATION [None]
  - ORAL DISCOMFORT [None]
  - TONGUE DISCOLOURATION [None]
